FAERS Safety Report 9731396 (Version 1)
Quarter: 2013Q4

REPORT INFORMATION
  Report Type: Spontaneous
  Country: DE (occurrence: None)
  Receive Date: 20131203
  Receipt Date: 20131203
  Transmission Date: 20140711
  Serious: Yes (Other)
  Sender: FDA-Public Use
  Company Number: 7252144

PATIENT
  Sex: Male

DRUGS (2)
  1. LEVOTHYROXINE SODIUM [Suspect]
     Indication: HYPOTHYROIDISM
     Dosage: PRODUCT TAKEN BY MOTHER
  2. BETAMETHASONE [Suspect]
     Dosage: PRODUCT TAKEN BY MOTHER

REACTIONS (6)
  - Congenital diaphragmatic eventration [None]
  - Patent ductus arteriosus [None]
  - Premature baby [None]
  - Jaundice neonatal [None]
  - Low birth weight baby [None]
  - Foetal exposure during pregnancy [None]
